FAERS Safety Report 13226651 (Version 2)
Quarter: 2017Q2

REPORT INFORMATION
  Report Type: Spontaneous
  Country: US (occurrence: US)
  Receive Date: 20170213
  Receipt Date: 20170424
  Transmission Date: 20170830
  Serious: Yes (Hospitalization, Other)
  Sender: FDA-Public Use
  Company Number: US-BAYER-2017-027346

PATIENT
  Age: 60 Year
  Sex: Female

DRUGS (5)
  1. CLIMARA [Suspect]
     Active Substance: ESTRADIOL
     Dosage: 0.75 MG
     Route: 062
     Dates: start: 20170109
  2. LYRICA [Concomitant]
     Active Substance: PREGABALIN
  3. PRASUGREL. [Concomitant]
     Active Substance: PRASUGREL
     Indication: THYROID DISORDER
  4. ATORVASTATIN [Concomitant]
     Active Substance: ATORVASTATIN
  5. CARVEDILOL. [Concomitant]
     Active Substance: CARVEDILOL

REACTIONS (4)
  - Road traffic accident [None]
  - Loss of consciousness [Recovered/Resolved]
  - Product physical issue [None]
  - Product adhesion issue [None]

NARRATIVE: CASE EVENT DATE: 20170122
